FAERS Safety Report 5944020-4 (Version None)
Quarter: 2008Q4

REPORT INFORMATION
  Report Type: 
  Country: None (occurrence: None)
  Receive Date: 20081106
  Receipt Date: 20081028
  Transmission Date: 20090506
  Serious: Yes (Other)
  Sender: FDA-Public Use
  Company Number: US-WYE-H06586808

PATIENT
  Sex: Female
  Weight: 67.65 kg

DRUGS (1)
  1. PRISTIQ [Suspect]
     Dosage: ^50^, FREQUENCY NOT SPECIFIED
     Dates: start: 20080918, end: 20081017

REACTIONS (2)
  - NIGHTMARE [None]
  - SUICIDAL IDEATION [None]
